FAERS Safety Report 4445731-2 (Version None)
Quarter: 2004Q3

REPORT INFORMATION
  Report Type: 
  Country: None (occurrence: None)
  Receive Date: 20040903
  Receipt Date: 20040824
  Transmission Date: 20050211
  Serious: Yes (Death)
  Sender: FDA-Public Use
  Company Number: 2004-BP-07125AU

PATIENT
  Sex: Male

DRUGS (8)
  1. SPIRIVA [Suspect]
     Dosage: 18 MCG 18 MCG (SEE TEXT, 18MCG INHALED ONCE DAILY)
  2. SERETIDE [Concomitant]
  3. VENTOLIN [Concomitant]
  4. NORTRIPTYLINE HCL [Concomitant]
  5. TRIMETHOPRIM [Concomitant]
  6. CITALOPRAM HYDROBROMIDE [Concomitant]
  7. NILSTAT (NYSTATIN) [Concomitant]
  8. ASPIRIN [Concomitant]

REACTIONS (1)
  - MYOCARDIAL INFARCTION [None]
